FAERS Safety Report 23822313 (Version 1)
Quarter: 2024Q2

REPORT INFORMATION
  Report Type: Spontaneous
  Country: US (occurrence: None)
  Receive Date: 20240504
  Receipt Date: 20240504
  Transmission Date: 20240715
  Serious: Yes (Hospitalization)
  Sender: FDA-Public Use
  Company Number: None

PATIENT
  Age: 74 Year
  Sex: Male
  Weight: 106 kg

DRUGS (2)
  1. METHOTREXATE SODIUM [Suspect]
     Active Substance: METHOTREXATE SODIUM
     Indication: Rheumatoid arthritis
     Dosage: 10 MG QWEEK PO
     Route: 048
     Dates: start: 20230110, end: 20230213
  2. HYDROXYCHLOROQUINE SULFATE [Suspect]
     Active Substance: HYDROXYCHLOROQUINE SULFATE
     Dosage: 200 MG BID PO
     Dates: start: 20210617, end: 20230604

REACTIONS (8)
  - Depression [None]
  - Suicidal ideation [None]
  - Therapy cessation [None]
  - Alcohol use [None]
  - Ophthalmic herpes zoster [None]
  - Headache [None]
  - Conjunctivitis [None]
  - Impetigo [None]

NARRATIVE: CASE EVENT DATE: 20230213
